FAERS Safety Report 23697716 (Version 5)
Quarter: 2024Q4

REPORT INFORMATION
  Report Type: Spontaneous
  Country: GR (occurrence: GR)
  Receive Date: 20240402
  Receipt Date: 20241001
  Transmission Date: 20250115
  Serious: No
  Sender: PFIZER
  Company Number: GR-PFIZER INC-PV202400037989

PATIENT
  Age: 8 Year
  Sex: Female
  Weight: 20 kg

DRUGS (1)
  1. GENOTROPIN [Suspect]
     Active Substance: SOMATROPIN
     Indication: Growth hormone deficiency
     Dosage: 0.6 MG X 5 DAYS AND 0.4 MG X 1 DAY / 6 DAYS
     Route: 058
     Dates: start: 202401

REACTIONS (2)
  - Poor quality device used [Unknown]
  - Device issue [Unknown]

NARRATIVE: CASE EVENT DATE: 20240317
